FAERS Safety Report 8004724-9 (Version None)
Quarter: 2011Q4

REPORT INFORMATION
  Report Type: 
  Country: None (occurrence: None)
  Receive Date: 20111220
  Receipt Date: 20111208
  Transmission Date: 20120403
  Serious: Yes (Other)
  Sender: FDA-Public Use
  Company Number: 1000026256

PATIENT
  Age: 61 Year
  Sex: Female

DRUGS (5)
  1. ALDACTAZINE (ALTIZIDE, SPIRONOLACTONE) (ALTIZIDE, SPIRONOLACTONE) [Concomitant]
  2. STILNOX (ZOLPIDEM TARTRATE) (ZOLPIDEM TARTRATE) [Concomitant]
  3. LIPANTHYL (FENOFIBRATE) (FENOFIBRATE) [Concomitant]
  4. FOSFOMYCIN (FOSFOMYCIN TROMETAMOL) (3 GRAM, GRANULATE) [Suspect]
     Indication: URINARY TRACT INFECTION
     Dosage: 3 GM, ONCE, ORAL
     Route: 048
     Dates: start: 20110701, end: 20110701
  5. FOSFOMYCIN (FOSFOMYCIN TROMETAMOL) (3 GRAM, GRANULATE) [Suspect]
     Indication: URINARY TRACT INFECTION
     Dosage: 3 GM, ONCE, ORAL
     Route: 048
     Dates: start: 20110901, end: 20110901

REACTIONS (2)
  - PANCREATITIS ACUTE [None]
  - ABDOMINAL PAIN [None]
